FAERS Safety Report 6922550-6 (Version None)
Quarter: 2010Q3

REPORT INFORMATION
  Report Type: 
  Country: None (occurrence: None)
  Receive Date: 20100813
  Receipt Date: 20100803
  Transmission Date: 20110219
  Serious: Yes (Hospitalization, Other)
  Sender: FDA-Public Use
  Company Number: JP-SANOFI-AVENTIS-2010SA045466

PATIENT
  Age: 53 Year
  Sex: Female

DRUGS (24)
  1. RIFAMPICIN [Suspect]
     Dates: start: 20071101, end: 20080125
  2. SELENICA-R [Suspect]
     Indication: EPILEPSY
     Route: 048
     Dates: start: 20080201, end: 20080219
  3. ISCOTIN [Suspect]
     Dates: start: 20071101, end: 20080125
  4. ISCOTIN [Suspect]
     Route: 048
     Dates: start: 20080319, end: 20080323
  5. ISCOTIN [Suspect]
     Route: 048
     Dates: start: 20080324, end: 20090114
  6. PYRAMIDE [Suspect]
     Dates: start: 20071101, end: 20080125
  7. ETHAMBUTOL HYDROCHLORIDE [Suspect]
     Route: 048
     Dates: start: 20080312, end: 20090114
  8. DEPAKENE [Concomitant]
     Indication: EPILEPSY
     Route: 048
     Dates: start: 20080215, end: 20080229
  9. VALERIN [Concomitant]
     Indication: EPILEPSY
     Route: 048
     Dates: start: 20080301, end: 20080313
  10. PHENOBARBITAL TAB [Concomitant]
     Indication: EPILEPSY
     Route: 048
  11. PHENYTOIN SODIUM [Concomitant]
     Indication: EPILEPSY
     Route: 048
  12. LIPIDIL [Concomitant]
     Indication: HEPATIC STEATOSIS
     Route: 048
     Dates: end: 20080216
  13. LIPIDIL [Concomitant]
     Route: 048
     Dates: end: 20080216
  14. TEGRETOL [Concomitant]
     Indication: EPILEPSY
     Route: 048
     Dates: end: 20080220
  15. TEGRETOL [Concomitant]
     Route: 048
     Dates: start: 20080220
  16. RABEPRAZOLE SODIUM [Concomitant]
     Route: 048
     Dates: start: 20080215
  17. MONILAC [Concomitant]
     Route: 048
     Dates: start: 20080227, end: 20080316
  18. CRAVIT [Concomitant]
     Route: 048
     Dates: start: 20080312, end: 20090114
  19. PRIMPERAN TAB [Concomitant]
     Indication: VOMITING
     Route: 042
     Dates: start: 20080211, end: 20080211
  20. GASTER [Concomitant]
     Route: 042
     Dates: start: 20080211, end: 20080211
  21. CEFMETAZON [Concomitant]
     Indication: INFECTION PROPHYLAXIS
     Route: 042
     Dates: start: 20080221, end: 20080222
  22. MONILAC [Concomitant]
     Route: 048
     Dates: start: 20080317, end: 20080324
  23. MONILAC [Concomitant]
     Route: 048
     Dates: start: 20080325, end: 20080326
  24. MONILAC [Concomitant]
     Dates: start: 20070301

REACTIONS (2)
  - HEPATIC ENCEPHALOPATHY [None]
  - LIVER DISORDER [None]
